FAERS Safety Report 24670698 (Version 1)
Quarter: 2024Q4

REPORT INFORMATION
  Report Type: Spontaneous
  Country: US (occurrence: US)
  Receive Date: 20241127
  Receipt Date: 20241127
  Transmission Date: 20250115
  Serious: Yes (Hospitalization, Other)
  Sender: FRESENIUS KABI
  Company Number: US-FreseniusKabi-FK202417683

PATIENT
  Age: 14 Year
  Sex: Male

DRUGS (1)
  1. RIFAMPIN [Suspect]
     Active Substance: RIFAMPIN
     Indication: Latent tuberculosis
     Dosage: INTERMITTENT MEDICATION ADHERENCE

REACTIONS (4)
  - Haemolytic anaemia [Unknown]
  - Pigment nephropathy [Unknown]
  - Acute kidney injury [Unknown]
  - Treatment noncompliance [Unknown]
